FAERS Safety Report 17179010 (Version 2)
Quarter: 2019Q4

REPORT INFORMATION
  Report Type: Spontaneous
  Country: US (occurrence: US)
  Receive Date: 20191219
  Receipt Date: 20191226
  Transmission Date: 20200122
  Serious: No
  Sender: FDA-Public Use
  Company Number: US-BRISTOL-MYERS SQUIBB COMPANY-BMS-2019-122101

PATIENT
  Age: 64 Year
  Sex: Male
  Weight: 128.4 kg

DRUGS (2)
  1. ELIQUIS [Suspect]
     Active Substance: APIXABAN
     Indication: PRODUCT USED FOR UNKNOWN INDICATION
     Dosage: 5 MILLIGRAM, QD
     Route: 048
  2. ELIQUIS [Suspect]
     Active Substance: APIXABAN
     Indication: HYPERTENSION
     Dosage: 5 MILLIGRAM, BID
     Route: 048
     Dates: start: 201901

REACTIONS (4)
  - Epistaxis [Unknown]
  - Intentional product use issue [Unknown]
  - Inappropriate schedule of product administration [Unknown]
  - Hypersomnia [Unknown]

NARRATIVE: CASE EVENT DATE: 201912
